FAERS Safety Report 4803785-5 (Version None)
Quarter: 2005Q4

REPORT INFORMATION
  Report Type: 
  Country: None (occurrence: None)
  Receive Date: 20051019
  Receipt Date: 20050727
  Transmission Date: 20060501
  Serious: Yes (Other)
  Sender: FDA-Public Use
  Company Number: JP-MERCK-0507USA04407

PATIENT
  Age: 36 Year
  Sex: Female
  Weight: 70 kg

DRUGS (6)
  1. COZAAR [Suspect]
     Indication: HYPERTENSION
     Route: 048
     Dates: start: 20030515, end: 20050501
  2. COZAAR [Suspect]
     Route: 048
     Dates: start: 20001121, end: 20030514
  3. FLUITRAN [Concomitant]
     Indication: HYPERTENSION
     Route: 048
     Dates: start: 20050501
  4. ALESION [Concomitant]
     Indication: SEASONAL ALLERGY
     Route: 048
     Dates: start: 20050207, end: 20050417
  5. CELESTAMINE TAB [Concomitant]
     Indication: SEASONAL ALLERGY
     Route: 048
     Dates: start: 20050314, end: 20050301
  6. DEPO-MEDROL [Concomitant]
     Indication: SEASONAL ALLERGY
     Route: 030
     Dates: start: 20050314

REACTIONS (4)
  - ABORTION [None]
  - ABORTION SPONTANEOUS [None]
  - DRUG EXPOSURE DURING PREGNANCY [None]
  - INTRA-UTERINE DEATH [None]
